FAERS Safety Report 5890969-0 (Version None)
Quarter: 2008Q3

REPORT INFORMATION
  Report Type: 
  Country: None (occurrence: None)
  Receive Date: 20080922
  Receipt Date: 20080912
  Transmission Date: 20090109
  Serious: Yes (Hospitalization)
  Sender: FDA-Public Use
  Company Number: A0748491A

PATIENT
  Age: 69 Year
  Sex: Male
  Weight: 100 kg

DRUGS (9)
  1. AVANDAMET [Suspect]
     Route: 048
     Dates: start: 20050604, end: 20060513
  2. AVANDIA [Suspect]
     Dosage: 2MG PER DAY
     Route: 048
     Dates: start: 20060513, end: 20070601
  3. METFORMIN HCL [Concomitant]
     Dates: start: 20060513, end: 20061215
  4. TOPROL-XL [Concomitant]
     Dates: start: 20070424
  5. CELEBREX [Concomitant]
     Dates: start: 20060509, end: 20061230
  6. LIPITOR [Concomitant]
     Dates: start: 19950530
  7. HYDROCODONE BITARTRATE [Concomitant]
  8. LEXAPRO [Concomitant]
  9. UNSPECIFIED MEDICATION [Concomitant]

REACTIONS (3)
  - CARDIAC DISORDER [None]
  - CARDIAC FAILURE CONGESTIVE [None]
  - MYOCARDIAL INFARCTION [None]
